FAERS Safety Report 22203748 (Version 1)
Quarter: 2023Q2

REPORT INFORMATION
  Report Type: Spontaneous
  Country: US (occurrence: US)
  Receive Date: 20230412
  Receipt Date: 20230412
  Transmission Date: 20230721
  Serious: Yes (Death, Other)
  Sender: FDA-Public Use
  Company Number: US-JNJFOC-20191004663

PATIENT
  Age: 39 Year
  Sex: Male

DRUGS (1)
  1. IMODIUM [Suspect]
     Active Substance: LOPERAMIDE HYDROCHLORIDE
     Indication: Drug dependence
     Route: 065

REACTIONS (4)
  - Cardiomegaly [Fatal]
  - Pulmonary oedema [Fatal]
  - Off label use [Unknown]
  - Product use in unapproved indication [Unknown]
